FAERS Safety Report 8916610 (Version 2)
Quarter: 2012Q4

REPORT INFORMATION
  Report Type: 
  Country: GB (occurrence: GB)
  Receive Date: 20121120
  Receipt Date: 20121207
  Transmission Date: 20130627
  Serious: Yes (Other)
  Sender: FDA-Public Use
  Company Number: GB-WATSON-2012-19646

PATIENT
  Sex: Female

DRUGS (1)
  1. FLUOXETINE HYDROCHLORIDE (UNKNOWN) [Suspect]
     Indication: DEPRESSION
     Dosage: 20mg  Strength 20mg, Expiry 03/2015 and 02/2015 ExpDT=??-FEB-2015  Strength 20mg, Expiry 03/2015 an
     Route: 065

REACTIONS (11)
  - Arthralgia [Unknown]
  - Back pain [Unknown]
  - Fatigue [Unknown]
  - Malaise [Unknown]
  - Infection [Unknown]
  - Alcohol intolerance [Unknown]
  - Influenza like illness [Unknown]
  - Abnormal behaviour [Unknown]
  - Drug ineffective [Unknown]
  - Urinary tract infection [Unknown]
  - Memory impairment [Unknown]
